FAERS Safety Report 4262299-4 (Version None)
Quarter: 2004Q1

REPORT INFORMATION
  Report Type: 
  Country: None (occurrence: None)
  Receive Date: 20040102
  Receipt Date: 20031023
  Transmission Date: 20041129
  Serious: Yes (Death)
  Sender: FDA-Public Use
  Company Number: PHBS2003CO11828

PATIENT
  Age: 103 Year
  Sex: Female

DRUGS (9)
  1. ACETAMINOPHEN [Concomitant]
     Route: 065
  2. HIDROCODONE [Concomitant]
     Route: 065
  3. VALDECOXIB [Concomitant]
     Route: 065
  4. PAROXETINE [Concomitant]
     Route: 065
  5. ESOMEPRAZOLE [Concomitant]
     Route: 065
  6. CLOPIDOGREL [Concomitant]
     Route: 065
  7. GLIMEPIRIDE [Concomitant]
     Route: 065
  8. ROSIGLITAZONE MALEATE [Concomitant]
     Route: 065
  9. TRILEPTAL [Suspect]
     Indication: NEUROPATHIC PAIN
     Dosage: 600 MG/DAY
     Route: 048
     Dates: start: 20030130

REACTIONS (1)
  - DEATH [None]
